FAERS Safety Report 4790560-3 (Version None)
Quarter: 2005Q4

REPORT INFORMATION
  Report Type: 
  Country: None (occurrence: None)
  Receive Date: 20051005
  Receipt Date: 20050919
  Transmission Date: 20060501
  Serious: Yes (Death, Hospitalization, Other)
  Sender: FDA-Public Use
  Company Number: US_0509122089

PATIENT
  Age: 12 Year
  Sex: Female
  Weight: 54 kg

DRUGS (5)
  1. ZYPREXA [Suspect]
     Indication: AGGRESSION
     Dates: start: 20030701, end: 20040804
  2. CLONIDINE [Concomitant]
  3. LEXAPRO [Concomitant]
  4. CONCERTA [Concomitant]
  5. BENADRYL [Concomitant]

REACTIONS (13)
  - ANAEMIA [None]
  - DIABETES MELLITUS INSULIN-DEPENDENT [None]
  - DIABETIC COMA [None]
  - DIABETIC KETOACIDOSIS [None]
  - ENCEPHALOPATHY [None]
  - ENDOCRINE DISORDER [None]
  - HAEMORRHAGE [None]
  - HYPERTENSION [None]
  - LETHARGY [None]
  - PANCREATITIS [None]
  - THALASSAEMIA BETA [None]
  - THROMBOCYTOPENIA [None]
  - WEIGHT INCREASED [None]
